FAERS Safety Report 13291958 (Version 1)
Quarter: 2017Q1

REPORT INFORMATION
  Report Type: Spontaneous
  Country: US (occurrence: US)
  Receive Date: 20170303
  Receipt Date: 20170303
  Transmission Date: 20170428
  Serious: Yes (Death, Other)
  Sender: FDA-Public Use
  Company Number: US-FRESENIUS KABI-FK201701789

PATIENT
  Age: 1 Year
  Weight: 9.7 kg

DRUGS (4)
  1. ALBUMIN [Concomitant]
     Active Substance: ALBUMIN HUMAN
     Indication: EXTRACORPOREAL MEMBRANE OXYGENATION
     Route: 065
  2. VASOPRESSIN. [Concomitant]
     Active Substance: VASOPRESSIN
     Indication: VASOPRESSIVE THERAPY
     Route: 065
  3. HEPARIN (MANUFACTURER UNKNOWN) [Suspect]
     Active Substance: HEPARIN SODIUM
     Indication: ANTICOAGULANT THERAPY
     Route: 065
  4. MILRINONE [Concomitant]
     Active Substance: MILRINONE
     Indication: VASOPRESSIVE THERAPY
     Route: 065

REACTIONS (2)
  - Disseminated intravascular coagulation [Unknown]
  - Respiratory failure [Fatal]
